FAERS Safety Report 24244903 (Version 3)
Quarter: 2024Q4

REPORT INFORMATION
  Report Type: Spontaneous
  Country: US (occurrence: US)
  Receive Date: 20240823
  Receipt Date: 20241003
  Transmission Date: 20250114
  Serious: Yes (Other)
  Sender: NOVARTIS
  Company Number: US-002147023-NVSC2024US170409

PATIENT
  Age: 37 Year
  Sex: Female

DRUGS (1)
  1. ENTRESTO [Suspect]
     Active Substance: SACUBITRIL\VALSARTAN
     Indication: Product used for unknown indication
     Dosage: UNK
     Route: 065

REACTIONS (15)
  - Autoimmune disorder [Unknown]
  - Cardiac failure [Unknown]
  - Lung disorder [Unknown]
  - Coagulopathy [Unknown]
  - Obesity [Unknown]
  - Spinal osteoarthritis [Unknown]
  - Ejection fraction abnormal [Unknown]
  - Illness [Unknown]
  - Fatigue [Unknown]
  - Asthenia [Unknown]
  - Drug intolerance [Unknown]
  - Hypoaesthesia [Unknown]
  - Palpitations [Unknown]
  - Dyspnoea [Unknown]
  - Pulmonary oedema [Unknown]
